FAERS Safety Report 11085748 (Version 4)
Quarter: 2016Q2

REPORT INFORMATION
  Report Type: Spontaneous
  Country: US (occurrence: US)
  Receive Date: 20150503
  Receipt Date: 20160531
  Transmission Date: 20160815
  Serious: Yes (Other)
  Sender: FDA-Public Use
  Company Number: US-JNJFOC-20140105967

PATIENT
  Age: 12 Year
  Sex: Female

DRUGS (3)
  1. PYRIBENZAMINE [Concomitant]
     Active Substance: TRIPELENNAMINE HYDROCHLORIDE
     Indication: ASTHMA
     Route: 065
  2. EPINEPHRINE. [Concomitant]
     Active Substance: EPINEPHRINE
     Indication: HYPERSENSITIVITY
     Route: 065
  3. ORTHO-NOVUM [Suspect]
     Active Substance: ETHINYL ESTRADIOL\NORETHINDRONE
     Indication: CONTRACEPTION
     Route: 065

REACTIONS (7)
  - Major depression [Not Recovered/Not Resolved]
  - Adverse drug reaction [Unknown]
  - Affective disorder [Not Recovered/Not Resolved]
  - Mental disorder [Unknown]
  - Overweight [Unknown]
  - Sexual dysfunction [Not Recovered/Not Resolved]
  - Panic attack [Unknown]

NARRATIVE: CASE EVENT DATE: 196909
